FAERS Safety Report 14336730 (Version 5)
Quarter: 2018Q2

REPORT INFORMATION
  Report Type: Report from Study
  Country: CA (occurrence: CA)
  Receive Date: 20171229
  Receipt Date: 20180503
  Transmission Date: 20180711
  Serious: Yes (Hospitalization)
  Sender: FDA-Public Use
  Company Number: CA-GLAXOSMITHKLINE-CA2017GSK142077

PATIENT
  Age: 61 Year
  Sex: Male

DRUGS (4)
  1. MEPOLIZUMAB [Suspect]
     Active Substance: MEPOLIZUMAB
     Dosage: 100 MG, Z  (MONTHLY)
     Route: 042
     Dates: start: 20171018
  2. MEPOLIZUMAB [Suspect]
     Active Substance: MEPOLIZUMAB
     Dosage: 100 MG, Z  (MONTHLY)
     Route: 042
  3. MEPOLIZUMAB [Suspect]
     Active Substance: MEPOLIZUMAB
     Indication: ASTHMA
     Dosage: 100 MG, Z (MONTHLY)
     Route: 042
     Dates: start: 20170628
  4. MEPOLIZUMAB [Suspect]
     Active Substance: MEPOLIZUMAB
     Dosage: 100 MG, Z (MONTHLY)
     Route: 042

REACTIONS (14)
  - Cough [Recovering/Resolving]
  - Chest pain [Unknown]
  - Laceration [Unknown]
  - Wheezing [Unknown]
  - Pyrexia [Recovering/Resolving]
  - Limb injury [Unknown]
  - Pain [Unknown]
  - Asthma [Recovering/Resolving]
  - Rales [Recovered/Resolved]
  - Fall [Unknown]
  - Tachycardia [Recovering/Resolving]
  - Drug dose omission [Unknown]
  - Dyspnoea [Unknown]
  - Malaise [Unknown]

NARRATIVE: CASE EVENT DATE: 201804
